FAERS Safety Report 9558955 (Version 2)
Quarter: 2013Q4

REPORT INFORMATION
  Report Type: Spontaneous
  Country: US (occurrence: US)
  Receive Date: 20130927
  Receipt Date: 20131118
  Transmission Date: 20140711
  Serious: Yes (Other)
  Sender: FDA-Public Use
  Company Number: US-BIOGENIDEC-2013BI093109

PATIENT
  Sex: Female
  Weight: 58 kg

DRUGS (9)
  1. AVONEX [Suspect]
     Indication: MULTIPLE SCLEROSIS
     Route: 030
     Dates: start: 20010216, end: 20031001
  2. AVONEX [Suspect]
     Indication: MULTIPLE SCLEROSIS
     Route: 030
     Dates: start: 20040519, end: 20040805
  3. AVONEX [Suspect]
     Indication: MULTIPLE SCLEROSIS
     Route: 030
     Dates: start: 20130819
  4. BACLOFEN [Concomitant]
     Route: 048
  5. HYDROCHLOROTHIAZIDE [Concomitant]
     Route: 048
  6. MEDROL [Concomitant]
  7. WELLBUTRIN XL [Concomitant]
     Route: 048
  8. OXYCODONE [Concomitant]
     Route: 048
  9. MECLIZINE [Concomitant]
     Route: 048

REACTIONS (1)
  - Skin cancer [Unknown]
